FAERS Safety Report 21422310 (Version 2)
Quarter: 2022Q4

REPORT INFORMATION
  Report Type: Spontaneous
  Country: FR (occurrence: FR)
  Receive Date: 20221007
  Receipt Date: 20221028
  Transmission Date: 20230113
  Serious: Yes (Other)
  Sender: FDA-Public Use
  Company Number: FR-SA-SAC20221003000616

PATIENT
  Age: 42 Year
  Sex: Female
  Weight: 61 kg

DRUGS (3)
  1. DUPIXENT [Suspect]
     Active Substance: DUPILUMAB
     Indication: Sinus polyp
     Dosage: 300 MG
     Route: 065
     Dates: start: 20211007
  2. DUPIXENT [Suspect]
     Active Substance: DUPILUMAB
     Indication: Asthma
  3. DUPIXENT [Suspect]
     Active Substance: DUPILUMAB
     Indication: Nasal polyps

REACTIONS (4)
  - Eosinophilic granulomatosis with polyangiitis [Recovered/Resolved]
  - Psoriasis [Unknown]
  - Eosinophil count increased [Unknown]
  - Eosinophilia [Unknown]

NARRATIVE: CASE EVENT DATE: 20220401
